FAERS Safety Report 5106341-7 (Version None)
Quarter: 2006Q3

REPORT INFORMATION
  Report Type: 
  Country: None (occurrence: None)
  Receive Date: 20060731
  Receipt Date: 20060501
  Transmission Date: 20061208
  Serious: Yes (Hospitalization)
  Sender: FDA-Public Use
  Company Number: US-JNJFOC-20060500720

PATIENT
  Age: 16 Year
  Sex: Female

DRUGS (2)
  1. RISPERDAL [Suspect]
     Indication: SCHIZOPHRENIA
     Dosage: 4 MG, ORAL
     Route: 048
     Dates: start: 20060301, end: 20060429
  2. ORAL CONTRACEPTIVE () ORAL CONTRACEPTIVE NOS [Concomitant]

REACTIONS (4)
  - ABNORMAL BEHAVIOUR [None]
  - AMENORRHOEA [None]
  - BLOOD PROLACTIN INCREASED [None]
  - GALACTORRHOEA [None]
